FAERS Safety Report 9133776 (Version 5)
Quarter: 2014Q2

REPORT INFORMATION
  Report Type: Report from Study
  Country: CZ (occurrence: CZ)
  Receive Date: 20130303
  Receipt Date: 20140411
  Transmission Date: 20141212
  Serious: Yes (Hospitalization)
  Sender: FDA-Public Use
  Company Number: CZ-UCBSA-079525

PATIENT
  Age: 76 Year
  Sex: Male
  Weight: 82 kg

DRUGS (10)
  1. NEUPRO [Suspect]
     Indication: PARKINSON^S DISEASE
     Route: 062
     Dates: start: 20101222
  2. NEUPRO [Suspect]
     Indication: PARKINSON^S DISEASE
     Route: 062
     Dates: start: 20101215, end: 20101221
  3. NEUPRO [Suspect]
     Indication: PARKINSON^S DISEASE
     Route: 062
     Dates: start: 20101208, end: 20101214
  4. NEUPRO [Suspect]
     Indication: PARKINSON^S DISEASE
     Route: 062
     Dates: start: 20101201, end: 20101207
  5. STALEVO [Suspect]
     Indication: PARKINSON^S DISEASE
     Dates: start: 201005
  6. SIMVACARD [Concomitant]
     Indication: HYPERCHOLESTEROLAEMIA
  7. MONOMACK [Concomitant]
     Indication: MYOCARDIAL ISCHAEMIA
     Dates: start: 2003
  8. SECTRAL [Concomitant]
     Indication: MYOCARDIAL ISCHAEMIA
     Dates: start: 2003
  9. ANOPYRIN [Concomitant]
     Indication: CEREBROVASCULAR ACCIDENT PROPHYLAXIS
     Dates: start: 200609
  10. CITALEC [Concomitant]
     Indication: DEPRESSION
     Dates: start: 200612, end: 201304

REACTIONS (2)
  - Syncope [Recovered/Resolved]
  - Atrioventricular block complete [Recovered/Resolved with Sequelae]
